FAERS Safety Report 5105680-3 (Version None)
Quarter: 2006Q3

REPORT INFORMATION
  Report Type: 
  Country: None (occurrence: None)
  Receive Date: 20060915
  Receipt Date: 20060811
  Transmission Date: 20061208
  Serious: No
  Sender: FDA-Public Use
  Company Number: 2006GB01391

PATIENT
  Age: 27904 Day
  Sex: Female
  Weight: 82 kg

DRUGS (5)
  1. SYMBICORT [Suspect]
     Indication: ASTHMA
     Dosage: 200
     Route: 055
     Dates: start: 20060623, end: 20060625
  2. CETIRIZINE HCL [Concomitant]
     Indication: SEASONAL ALLERGY
     Route: 048
     Dates: start: 19990527
  3. GLICLAZIDE [Concomitant]
     Indication: DIABETES MELLITUS
     Route: 048
     Dates: start: 20010903
  4. ALBUTEROL SPIROS [Concomitant]
     Indication: ASTHMA
     Route: 055
     Dates: start: 20040910
  5. SERETIDE [Concomitant]
     Indication: ASTHMA
     Route: 055
     Dates: start: 20030924

REACTIONS (2)
  - OEDEMA PERIPHERAL [None]
  - SWELLING FACE [None]
